FAERS Safety Report 5115544-7 (Version None)
Quarter: 2006Q3

REPORT INFORMATION
  Report Type: 
  Country: None (occurrence: None)
  Receive Date: 20060927
  Receipt Date: 20060918
  Transmission Date: 20061208
  Serious: Yes (Life-Threatening, Hospitalization, Disabling, Other)
  Sender: FDA-Public Use
  Company Number: IE-JNJFOC-20060803415

PATIENT
  Sex: Female

DRUGS (2)
  1. HALDOL SOLUTAB [Suspect]
     Indication: PSYCHOTIC DISORDER
     Route: 065
  2. OLANZAPINE [Concomitant]
     Indication: PSYCHOTIC DISORDER
     Route: 065

REACTIONS (4)
  - CARDIOMYOPATHY [None]
  - EJECTION FRACTION DECREASED [None]
  - HYPERTHERMIA [None]
  - VENTRICULAR FAILURE [None]
